FAERS Safety Report 4638879-0 (Version None)
Quarter: 2005Q2

REPORT INFORMATION
  Report Type: 
  Country: None (occurrence: None)
  Receive Date: 20050419
  Receipt Date: 20050408
  Transmission Date: 20051028
  Serious: Yes (Other)
  Sender: FDA-Public Use
  Company Number: US-JNJFOC-20050402682

PATIENT
  Sex: Female
  Weight: 79.38 kg

DRUGS (4)
  1. RISPERDAL [Suspect]
     Indication: SCHIZOAFFECTIVE DISORDER
     Route: 065
  2. LITHIUM [Concomitant]
  3. SEROQUEL [Concomitant]
  4. SYNTHROID [Concomitant]

REACTIONS (3)
  - DYSPNOEA [None]
  - LIVER DISORDER [None]
  - SARCOIDOSIS [None]
